FAERS Safety Report 6449195-9 (Version None)
Quarter: 2009Q4

REPORT INFORMATION
  Report Type: 
  Country: None (occurrence: None)
  Receive Date: 20091116
  Receipt Date: 20091103
  Transmission Date: 20100525
  Serious: Yes (Disabling)
  Sender: FDA-Public Use
  Company Number: 1000010044

PATIENT
  Age: 39 Year
  Sex: Female
  Weight: 85 kg

DRUGS (1)
  1. ESCITALOPRAM OXALATE [Suspect]
     Indication: DEPRESSION
     Dosage: 50 MG (50 MG, 1 IN 1 D), ORAL
     Route: 048
     Dates: start: 20081001, end: 20091001

REACTIONS (1)
  - CHOREA [None]
